FAERS Safety Report 15744005 (Version 1)
Quarter: 2018Q4

REPORT INFORMATION
  Report Type: Spontaneous
  Country: DE (occurrence: DE)
  Receive Date: 20181220
  Receipt Date: 20181220
  Transmission Date: 20190205
  Serious: Yes (Other)
  Sender: FDA-Public Use
  Company Number: DE-TEVA-2018-DE-988963

PATIENT
  Age: 32 Year
  Sex: Male
  Weight: 63 kg

DRUGS (1)
  1. MOXIFLOXACIN PUREN 400 MG FILMTABLETTEN [Suspect]
     Active Substance: MOXIFLOXACIN
     Indication: MYCOPLASMA INFECTION
     Dosage: 400 MILLIGRAM DAILY; DAILY DOSE: 400 MG MILLGRAM(S) EVERY DAYS
     Route: 065

REACTIONS (11)
  - Tremor [Recovering/Resolving]
  - Temperature regulation disorder [Recovering/Resolving]
  - Paraesthesia [Recovering/Resolving]
  - Tendon pain [Recovering/Resolving]
  - Rash erythematous [Recovering/Resolving]
  - Skin haemorrhage [Recovering/Resolving]
  - Pruritus [Recovering/Resolving]
  - Muscle haemorrhage [Recovering/Resolving]
  - Blister [Recovering/Resolving]
  - Asthenia [Recovered/Resolved]
  - Myalgia [Recovering/Resolving]

NARRATIVE: CASE EVENT DATE: 20181110
